FAERS Safety Report 17664831 (Version 4)
Quarter: 2020Q3

REPORT INFORMATION
  Report Type: Spontaneous
  Country: US (occurrence: US)
  Receive Date: 20200414
  Receipt Date: 20200930
  Transmission Date: 20201102
  Serious: Yes (Other)
  Sender: FDA-Public Use
  Company Number: US-PFIZER INC-2020115517

PATIENT
  Age: 46 Year
  Sex: Female

DRUGS (3)
  1. METHOTREXATE. [Concomitant]
     Active Substance: METHOTREXATE
     Dosage: INCREASED DOSE SLIGHTLY
  2. PREDNISONE. [Concomitant]
     Active Substance: PREDNISONE
     Dosage: TAPERING OFF
  3. XELJANZ XR [Suspect]
     Active Substance: TOFACITINIB CITRATE
     Dosage: 11 MG, UNK
     Dates: start: 20200221, end: 20200923

REACTIONS (11)
  - Eye infection [Unknown]
  - Product dose omission issue [Unknown]
  - Irritability [Unknown]
  - Pain in extremity [Recovering/Resolving]
  - Tooth disorder [Unknown]
  - Arthritis infective [Unknown]
  - Condition aggravated [Unknown]
  - Cyst [Unknown]
  - Arthralgia [Recovering/Resolving]
  - Rheumatoid arthritis [Unknown]
  - Procedural pain [Unknown]

NARRATIVE: CASE EVENT DATE: 20200922
